FAERS Safety Report 20847926 (Version 2)
Quarter: 2022Q2

REPORT INFORMATION
  Report Type: Spontaneous
  Country: US (occurrence: US)
  Receive Date: 20220519
  Receipt Date: 20220628
  Transmission Date: 20220720
  Serious: Yes (Other)
  Sender: FDA-Public Use
  Company Number: US-BRISTOL-MYERS SQUIBB COMPANY-2022-037231

PATIENT
  Age: 49 Year
  Sex: Male

DRUGS (3)
  1. SPRYCEL [Suspect]
     Active Substance: DASATINIB
     Indication: Chronic myeloid leukaemia
     Dosage: DOSE : 100MG;     FREQ : DAILY
     Route: 048
  2. SPRYCEL [Suspect]
     Active Substance: DASATINIB
     Route: 065
  3. GLEEVEC [Concomitant]
     Active Substance: IMATINIB MESYLATE
     Indication: Product used for unknown indication
     Route: 065

REACTIONS (1)
  - Pulmonary oedema [Unknown]
